FAERS Safety Report 9509769 (Version 1)
Quarter: 2013Q3

REPORT INFORMATION
  Report Type: Spontaneous
  Country: US (occurrence: US)
  Receive Date: 20130909
  Receipt Date: 20130909
  Transmission Date: 20140515
  Serious: No
  Sender: FDA-Public Use
  Company Number: US-BRISTOL-MYERS SQUIBB COMPANY-18857508

PATIENT
  Age: 41 Year
  Sex: Female

DRUGS (5)
  1. ABILIFY [Suspect]
     Indication: DEPRESSION
     Dosage: INTIALLY 2 MG AND THEN INCREASED TO 5 MG
     Dates: start: 2013, end: 2013
  2. ABILIFY [Suspect]
     Indication: ANXIETY
     Dosage: INTIALLY 2 MG AND THEN INCREASED TO 5 MG
     Dates: start: 2013, end: 2013
  3. VITAMIN D3 [Concomitant]
  4. FENOFIBRATE [Concomitant]
     Indication: BLOOD TRIGLYCERIDES INCREASED
  5. METFORMIN HCL [Concomitant]
     Indication: POLYCYSTIC OVARIES

REACTIONS (1)
  - Insomnia [Recovered/Resolved]
